FAERS Safety Report 24542500 (Version 1)
Quarter: 2024Q4

REPORT INFORMATION
  Report Type: Report from Study
  Country: US (occurrence: US)
  Receive Date: 20241024
  Receipt Date: 20241024
  Transmission Date: 20250114
  Serious: Yes (Other)
  Sender: ASTELLAS
  Company Number: US-ASTELLAS-2024EU007238

PATIENT
  Age: 80 Year
  Sex: Male
  Weight: 81.19 kg

DRUGS (1)
  1. ENZALUTAMIDE [Suspect]
     Active Substance: ENZALUTAMIDE
     Indication: Prostate cancer
     Dosage: 160 MG, ONCE DAILY (4 CAPSULES)
     Route: 048
     Dates: start: 20240608

REACTIONS (14)
  - Hereditary non-polyposis colorectal cancer syndrome [Unknown]
  - Blood pressure fluctuation [Unknown]
  - Night sweats [Unknown]
  - Dyspnoea [Unknown]
  - Pollakiuria [Unknown]
  - Weight decreased [Unknown]
  - Arthralgia [Unknown]
  - Dizziness [Unknown]
  - Chest discomfort [Unknown]
  - Insomnia [Unknown]
  - Fatigue [Unknown]
  - Asthenia [Unknown]
  - Brain fog [Unknown]
  - Heart rate increased [Unknown]

NARRATIVE: CASE EVENT DATE: 20240601
